FAERS Safety Report 20145440 (Version 1)
Quarter: 2021Q4

REPORT INFORMATION
  Report Type: Spontaneous
  Country: GB (occurrence: GB)
  Receive Date: 20211203
  Receipt Date: 20211203
  Transmission Date: 20220304
  Serious: Yes (Life-Threatening)
  Sender: FDA-Public Use
  Company Number: None

PATIENT
  Age: 42 Year
  Sex: Male
  Weight: 76.2 kg

DRUGS (3)
  1. VARENICLINE TARTRATE [Suspect]
     Active Substance: VARENICLINE TARTRATE
     Route: 048
     Dates: start: 20210210, end: 20210315
  2. GABAPENTIN [Concomitant]
     Active Substance: GABAPENTIN
  3. INSULIN NOS [Concomitant]
     Active Substance: INSULIN NOS

REACTIONS (6)
  - Suicide attempt [Recovered/Resolved with Sequelae]
  - Depressed mood [Unknown]
  - Anger [Unknown]
  - Irritability [Unknown]
  - Abnormal dreams [Unknown]
  - Flashback [Unknown]

NARRATIVE: CASE EVENT DATE: 20210220
